FAERS Safety Report 25863874 (Version 1)
Quarter: 2025Q3

REPORT INFORMATION
  Report Type: Spontaneous
  Country: IN (occurrence: IN)
  Receive Date: 20250930
  Receipt Date: 20250930
  Transmission Date: 20251020
  Serious: Yes (Hospitalization, Other)
  Sender: EXELA PHARMA SCIENCES
  Company Number: IN-EXELAPHARMA-2025EXLA00196

PATIENT
  Age: 22 Year
  Sex: Female

DRUGS (15)
  1. BLOXIVERZ [Suspect]
     Active Substance: NEOSTIGMINE METHYLSULFATE
     Indication: Neuromuscular blockade reversal
  2. GLYCOPYRROLATE [Suspect]
     Active Substance: GLYCOPYRROLATE
     Indication: Neuromuscular blockade reversal
  3. ASPIRIN [Concomitant]
     Active Substance: ASPIRIN
     Indication: Ischaemic stroke
     Route: 058
  4. Low molecular-weight heparin [Concomitant]
     Indication: Ischaemic stroke
     Route: 058
  5. FUROSEMIDE [Concomitant]
     Active Substance: FUROSEMIDE
     Route: 042
  6. ETOMIDATE [Concomitant]
     Active Substance: ETOMIDATE
     Indication: Endotracheal intubation
  7. SUCCINYLCHOLINE [Concomitant]
     Active Substance: SUCCINYLCHOLINE
     Indication: Endotracheal intubation
  8. ESMOLOL [Concomitant]
     Active Substance: ESMOLOL HYDROCHLORIDE
     Route: 042
  9. LIDOCAINE [Concomitant]
     Active Substance: LIDOCAINE
     Route: 042
  10. SEVOFLURANE [Concomitant]
     Active Substance: SEVOFLURANE
  11. ATRACURIUM [Concomitant]
     Active Substance: ATRACURIUM
     Indication: Hypotonia
  12. ACETAMINOPHEN [Concomitant]
     Active Substance: ACETAMINOPHEN
     Indication: Analgesic therapy
     Route: 042
  13. FENTANYL CITRATE [Concomitant]
     Active Substance: FENTANYL CITRATE
     Route: 042
  14. OXYTOCIN [Concomitant]
     Active Substance: OXYTOCIN
  15. PHENYLEPHRINE HYDROCHLORIDE [Concomitant]
     Active Substance: PHENYLEPHRINE HYDROCHLORIDE
     Indication: Hypotension

REACTIONS (5)
  - Condition aggravated [Recovered/Resolved]
  - Airway peak pressure increased [Recovered/Resolved]
  - Hypertension [Recovered/Resolved]
  - Bronchospasm [Recovered/Resolved]
  - Tachycardia [Recovered/Resolved]
